FAERS Safety Report 8860471 (Version 2)
Quarter: 2012Q4

REPORT INFORMATION
  Report Type: 
  Country: IT (occurrence: IT)
  Receive Date: 20121025
  Receipt Date: 20121126
  Transmission Date: 20130627
  Serious: Yes (Death, Hospitalization, Other)
  Sender: FDA-Public Use
  Company Number: IT-JNJFOC-20121010952

PATIENT

DRUGS (17)
  1. DOXORUBICIN [Suspect]
     Indication: BONE SARCOMA
     Route: 042
  2. DOXORUBICIN [Suspect]
     Indication: EWING^S SARCOMA
     Route: 042
  3. DOXORUBICIN HYDROCHLORIDE [Suspect]
     Indication: EWING^S SARCOMA
     Route: 065
  4. DOXORUBICIN HYDROCHLORIDE [Suspect]
     Indication: BONE SARCOMA
     Route: 042
  5. VINCRISTINE [Suspect]
     Indication: EWING^S SARCOMA
     Route: 065
  6. DACTINOMYCIN [Suspect]
     Indication: EWING^S SARCOMA
     Route: 065
  7. CYCLOPHOSPHAMIDE [Suspect]
     Indication: EWING^S SARCOMA
     Dosage: good responders-6000 mg/m2; poor responders-6400 mg/m2
     Route: 065
  8. IFOSFAMIDE [Suspect]
     Indication: BONE SARCOMA
     Route: 065
  9. IFOSFAMIDE [Suspect]
     Indication: EWING^S SARCOMA
     Route: 065
  10. ETOPOSIDE [Suspect]
     Indication: BONE SARCOMA
     Route: 065
  11. ETOPOSIDE [Suspect]
     Indication: EWING^S SARCOMA
     Route: 065
  12. MYLERAN [Suspect]
     Indication: EWING^S SARCOMA
     Dosage: day 1-4
     Route: 065
  13. MELPHALAN [Suspect]
     Indication: EWING^S SARCOMA
     Dosage: day 5
     Route: 065
  14. RADIOTHERAPY [Suspect]
     Indication: EWING^S SARCOMA
     Route: 065
  15. METHOTREXATE [Suspect]
     Indication: BONE SARCOMA
     Route: 065
  16. CISPLATIN [Suspect]
     Indication: BONE SARCOMA
     Route: 065
  17. CISPLATIN [Suspect]
     Indication: BONE SARCOMA
     Route: 013

REACTIONS (16)
  - Osteosarcoma [Fatal]
  - Neoplasm malignant [Fatal]
  - Toxicity to various agents [Fatal]
  - Ewing^s sarcoma [Fatal]
  - Cardiac failure congestive [Fatal]
  - Metastatic neoplasm [Fatal]
  - Adverse event [Fatal]
  - Azoospermia [Unknown]
  - Azoospermia [Unknown]
  - Infertility [Unknown]
  - Amenorrhoea [Unknown]
  - Exposure during pregnancy [Unknown]
  - Abortion spontaneous [Unknown]
  - Premature menopause [Unknown]
  - Cardiotoxicity [Unknown]
  - Off label use [Unknown]
